FAERS Safety Report 24316903 (Version 1)
Quarter: 2024Q3

REPORT INFORMATION
  Report Type: Spontaneous
  Country: US (occurrence: US)
  Receive Date: 20240913
  Receipt Date: 20240913
  Transmission Date: 20241017
  Serious: No
  Sender: SANOFI AVENTIS
  Company Number: US-SA-2024SA265255

PATIENT
  Age: 62 Year

DRUGS (1)
  1. ELITEK [Suspect]
     Active Substance: RASBURICASE
     Indication: Follicular lymphoma stage II
     Dosage: 7.5 MG, QD
     Route: 042

REACTIONS (1)
  - Off label use [Unknown]
